FAERS Safety Report 14497886 (Version 1)
Quarter: 2018Q1

REPORT INFORMATION
  Report Type: Spontaneous
  Country: US (occurrence: US)
  Receive Date: 20180206
  Receipt Date: 20180206
  Transmission Date: 20180509
  Serious: Yes (Life-Threatening, Disabling, Other)
  Sender: FDA-Public Use
  Company Number: None

PATIENT
  Age: 37 Year
  Sex: Female
  Weight: 109.8 kg

DRUGS (6)
  1. CEPHALEXIN 500 MG [Suspect]
     Active Substance: CEPHALEXIN
     Indication: CELLULITIS
     Dosage: ?          QUANTITY:4 CAPSULE(S);?
     Route: 048
  2. CEPHALEXIN 500 MG [Suspect]
     Active Substance: CEPHALEXIN
     Indication: INFECTION
     Dosage: ?          QUANTITY:4 CAPSULE(S);?
     Route: 048
  3. CEPHALEXIN 500 MG [Suspect]
     Active Substance: CEPHALEXIN
     Indication: SEPSIS
     Dosage: ?          QUANTITY:4 CAPSULE(S);?
     Route: 048
  4. HYDROCHLOROTHIAZIDE. [Concomitant]
     Active Substance: HYDROCHLOROTHIAZIDE
  5. SERTRALINE HCL [Concomitant]
     Active Substance: SERTRALINE HYDROCHLORIDE
  6. CEPHALEXIN 500 MG [Suspect]
     Active Substance: CEPHALEXIN
     Indication: PERIPHERAL SWELLING
     Dosage: ?          QUANTITY:4 CAPSULE(S);?
     Route: 048

REACTIONS (4)
  - Peripheral swelling [None]
  - Burning sensation [None]
  - Pain in extremity [None]
  - Condition aggravated [None]

NARRATIVE: CASE EVENT DATE: 20180205
